FAERS Safety Report 10156615 (Version 1)
Quarter: 2014Q2

REPORT INFORMATION
  Report Type: Spontaneous
  Country: US (occurrence: None)
  Receive Date: 20140506
  Receipt Date: 20140506
  Transmission Date: 20141212
  Serious: Yes (Hospitalization)
  Sender: FDA-Public Use
  Company Number: None

PATIENT
  Age: 52 Year
  Sex: Male
  Weight: 117.48 kg

DRUGS (20)
  1. LAMIVUDINE [Suspect]
     Indication: HIV INFECTION
     Route: 048
  2. NEBULIZATION SOLUTION [Concomitant]
  3. NITROGLYCERIN [Concomitant]
  4. TRIAMCINOLONE ACETONIDE [Concomitant]
  5. ASPIRIN [Concomitant]
  6. PEN NEEDLES [Concomitant]
  7. PREZISTA [Concomitant]
  8. BACTRIM [Concomitant]
  9. NOVOLOG FLEXPEN [Concomitant]
  10. MIRTAZAPINE [Concomitant]
  11. NORVIR [Concomitant]
  12. LIPITOR [Concomitant]
  13. EPZICOM [Concomitant]
  14. LISINOPRIL [Concomitant]
  15. PEPCID [Concomitant]
  16. COMBIVENT RESPIMAT [Concomitant]
  17. NORCO [Concomitant]
  18. KLONOPIN [Concomitant]
  19. LANTUS SOLOSTAR [Concomitant]
  20. ALBUTEROL [Concomitant]

REACTIONS (1)
  - Pancreatitis [None]
